FAERS Safety Report 9248535 (Version 5)
Quarter: 2015Q2

REPORT INFORMATION
  Report Type: Spontaneous
  Country: US (occurrence: US)
  Receive Date: 20130423
  Receipt Date: 20150512
  Transmission Date: 20150821
  Serious: No
  Sender: FDA-Public Use
  Company Number: US-009507513-1304USA010657

PATIENT
  Sex: Male
  Weight: 89.8 kg

DRUGS (3)
  1. FINASTERIDE. [Suspect]
     Active Substance: FINASTERIDE
     Indication: ALOPECIA
     Dosage: 5 MG, CUT INTO 4
     Route: 048
     Dates: start: 200508, end: 201112
  2. PROSCAR [Suspect]
     Active Substance: FINASTERIDE
     Indication: ALOPECIA
     Dosage: 5 MG CUT INTO 4 OR 1.25, QD
     Route: 048
     Dates: start: 200208, end: 201112
  3. FINASTERIDE. [Suspect]
     Active Substance: FINASTERIDE
     Dosage: 5 MG, QD
     Route: 048
     Dates: start: 20090428, end: 20110609

REACTIONS (20)
  - Soft tissue injury [Unknown]
  - Erectile dysfunction [Not Recovered/Not Resolved]
  - Wrong technique in drug usage process [Unknown]
  - Genital hypoaesthesia [Unknown]
  - Organic erectile dysfunction [Unknown]
  - Chlamydial infection [Unknown]
  - Keratoconus [Unknown]
  - Sexual dysfunction [Unknown]
  - Penis disorder [Unknown]
  - Anxiety [Not Recovered/Not Resolved]
  - Drug administration error [Unknown]
  - Cognitive disorder [Not Recovered/Not Resolved]
  - Hyperlipidaemia [Unknown]
  - Loss of libido [Unknown]
  - Drug ineffective [Unknown]
  - Hormone level abnormal [Unknown]
  - Brain injury [Unknown]
  - Blood pressure increased [Unknown]
  - Musculoskeletal pain [Unknown]
  - Depression [Not Recovered/Not Resolved]

NARRATIVE: CASE EVENT DATE: 200208
